FAERS Safety Report 9176753 (Version 4)
Quarter: 2013Q3

REPORT INFORMATION
  Report Type: Report from Study
  Country: US (occurrence: US)
  Receive Date: 20130321
  Receipt Date: 20130705
  Transmission Date: 20140515
  Serious: Yes (Other)
  Sender: FDA-Public Use
  Company Number: PHEH2013US006492

PATIENT
  Sex: Female

DRUGS (2)
  1. ZOMETA [Suspect]
     Dosage: 4 MG PER 5 ML
  2. FEMARA [Suspect]
     Indication: BREAST CANCER FEMALE
     Dosage: 2.5 MG, QD
     Route: 048

REACTIONS (5)
  - Neoplasm [Unknown]
  - Peripheral arterial occlusive disease [Unknown]
  - Nerve compression [Unknown]
  - Spinal pain [Unknown]
  - Malaise [Not Recovered/Not Resolved]
